FAERS Safety Report 24690840 (Version 1)
Quarter: 2024Q4

REPORT INFORMATION
  Report Type: Spontaneous
  Country: US (occurrence: US)
  Receive Date: 20241203
  Receipt Date: 20241203
  Transmission Date: 20250115
  Serious: No
  Sender: PAREXEL
  Company Number: US-NOVEN PHARMACEUTICALS, INC.-2023-NOV-US001273

PATIENT
  Sex: Female

DRUGS (1)
  1. ESTRADIOL [Suspect]
     Active Substance: ESTRADIOL
     Indication: Product used for unknown indication
     Dosage: UNKNOWN, ONCE WEEKLY
     Route: 062

REACTIONS (5)
  - Dermatitis contact [Unknown]
  - Feeling abnormal [Recovered/Resolved]
  - Application site urticaria [Unknown]
  - Migraine [Unknown]
  - Therapeutic product ineffective [Unknown]
